FAERS Safety Report 25526839 (Version 1)
Quarter: 2025Q3

REPORT INFORMATION
  Report Type: Report from Study
  Country: US (occurrence: US)
  Receive Date: 20250707
  Receipt Date: 20250707
  Transmission Date: 20251021
  Serious: Yes (Hospitalization)
  Sender: Unknown Manufacturer
  Company Number: US-MTPC-MTPA2025-0012284

PATIENT
  Sex: Male

DRUGS (2)
  1. RADICAVA ORS [Suspect]
     Active Substance: EDARAVONE
     Indication: Motor neurone disease
     Dosage: 5 MILLILITER, QD FOR 14 DAYS ON, THEN 14 DAYS OFF
     Route: 048
     Dates: start: 202506
  2. RADICAVA ORS [Suspect]
     Active Substance: EDARAVONE
     Indication: Motor neurone disease
     Dosage: 5 MILLILITER, QD FOR 14 DAYS ON, THEN 14 DAYS OFF
     Route: 048
     Dates: start: 202506

REACTIONS (4)
  - Constipation [Unknown]
  - Diarrhoea [Unknown]
  - Mental status changes [Unknown]
  - General physical condition abnormal [Unknown]
